FAERS Safety Report 15321332 (Version 1)
Quarter: 2018Q3

REPORT INFORMATION
  Report Type: Spontaneous
  Country: US (occurrence: US)
  Receive Date: 20180821
  Receipt Date: 20180821
  Transmission Date: 20181010
  Serious: Yes (Hospitalization)
  Sender: FDA-Public Use
  Company Number: None

PATIENT
  Sex: Male

DRUGS (1)
  1. STIVARGA [Suspect]
     Active Substance: REGORAFENIB
     Indication: COLON CANCER
     Dosage: OTHER FREQUENCY:QD X 21 DAYS 7 OFF;?
     Route: 048
     Dates: start: 20180713, end: 20180731

REACTIONS (2)
  - Blood pressure increased [None]
  - Drug intolerance [None]
